FAERS Safety Report 9475081 (Version 1)
Quarter: 2013Q3

REPORT INFORMATION
  Report Type: Spontaneous
  Country: US (occurrence: None)
  Receive Date: 20130822
  Receipt Date: 20130822
  Transmission Date: 20140515
  Serious: Yes (Other)
  Sender: FDA-Public Use
  Company Number: None

PATIENT
  Sex: Male

DRUGS (13)
  1. OXYCODONE HCL [Suspect]
     Indication: PAIN
     Route: 048
     Dates: start: 2007
  2. OXYCODONE HCL [Suspect]
     Indication: SPINAL FRACTURE
     Route: 048
     Dates: start: 2007
  3. ALBUTERAL [Concomitant]
  4. FLOWMAX [Concomitant]
  5. PRILOSEC [Concomitant]
  6. METHAZONE [Concomitant]
  7. NORVASC [Concomitant]
  8. DIAZEPAM [Concomitant]
  9. MULTI VITAMIN [Concomitant]
  10. FISH OIL [Concomitant]
  11. D3 [Concomitant]
  12. ASPIRIN [Concomitant]
  13. ZYRTEC [Concomitant]

REACTIONS (2)
  - Incorrect dose administered [None]
  - Product substitution issue [None]
